FAERS Safety Report 17429793 (Version 14)
Quarter: 2025Q4

REPORT INFORMATION
  Report Type: Report from Study
  Country: US (occurrence: US)
  Receive Date: 20200218
  Receipt Date: 20251229
  Transmission Date: 20260117
  Serious: Yes (Other)
  Sender: PFIZER
  Company Number: US-PFIZER INC-2020066436

PATIENT
  Age: 67 Year
  Sex: Female
  Weight: 61.23 kg

DRUGS (5)
  1. PREMARIN [Suspect]
     Active Substance: ESTROGENS, CONJUGATED
     Indication: Hot flush
     Dosage: 0.625 MG, ONCE IN THE EVENING
     Route: 048
     Dates: start: 1999
  2. PREMARIN [Suspect]
     Active Substance: ESTROGENS, CONJUGATED
     Indication: Mood swings
     Dosage: UNK, EVERY OTHER DAY
     Dates: start: 2021
  3. PREMARIN [Suspect]
     Active Substance: ESTROGENS, CONJUGATED
     Indication: Malaise
     Dosage: 0.625 MG, EVERY OTHER DAY
     Route: 048
  4. INDERAL [Concomitant]
     Active Substance: PROPRANOLOL HYDROCHLORIDE
     Indication: Mitral valve prolapse
     Dosage: 20 MG, 1X/DAY
     Route: 048
     Dates: start: 1984
  5. IMITREX [Concomitant]
     Active Substance: SUMATRIPTAN SUCCINATE
     Indication: Migraine
     Dosage: 100 MG, AS NEEDED
     Route: 048

REACTIONS (23)
  - Brain neoplasm [Unknown]
  - Ulcerative keratitis [Unknown]
  - Muscle twitching [Unknown]
  - Eye pain [Unknown]
  - Immunodeficiency [Unknown]
  - Systemic lupus erythematosus [Unknown]
  - Weight decreased [Unknown]
  - Nervousness [Unknown]
  - Anxiety [Unknown]
  - Stress [Unknown]
  - Fungal infection [Unknown]
  - Oral disorder [Unknown]
  - Malaise [Unknown]
  - Oedema [Unknown]
  - Fall [Unknown]
  - Rotator cuff syndrome [Unknown]
  - Limb injury [Unknown]
  - Ecchymosis [Unknown]
  - Gait inability [Unknown]
  - Impaired driving ability [Unknown]
  - Drug ineffective [Unknown]
  - Off label use [Unknown]
  - Intentional dose omission [Unknown]

NARRATIVE: CASE EVENT DATE: 20210101
